FAERS Safety Report 9463156 (Version 1)
Quarter: 2013Q3

REPORT INFORMATION
  Report Type: Spontaneous
  Country: FR (occurrence: FR)
  Receive Date: 20130817
  Receipt Date: 20130817
  Transmission Date: 20140515
  Serious: Yes (Hospitalization)
  Sender: FDA-Public Use
  Company Number: FR-UCBSA-094846

PATIENT
  Age: 68 Year
  Sex: Male

DRUGS (5)
  1. KEPPRA [Suspect]
     Route: 048
     Dates: start: 201304
  2. PARACETAMOL [Concomitant]
  3. INEXIUM [Concomitant]
     Dates: start: 201304
  4. SERESTA [Concomitant]
     Dosage: 150 MG
     Dates: start: 20130702
  5. SEROPLEX [Concomitant]

REACTIONS (3)
  - Cerebral haematoma [Unknown]
  - Suicide attempt [Unknown]
  - Irritability [Unknown]
